FAERS Safety Report 4746241-5 (Version None)
Quarter: 2005Q3

REPORT INFORMATION
  Report Type: 
  Country: None (occurrence: None)
  Receive Date: 20050816
  Receipt Date: 20050729
  Transmission Date: 20060218
  Serious: Yes (Other)
  Sender: FDA-Public Use
  Company Number: USA040362805

PATIENT
  Age: 78 Year
  Sex: Female
  Weight: 58 kg

DRUGS (7)
  1. FORTEO [Suspect]
     Indication: OSTEOPOROSIS
     Dosage: 20 UG/1 DAY
     Dates: start: 20040227
  2. CALCIUM WITH VITAMIN D [Concomitant]
  3. KLONOPIN [Concomitant]
  4. LIPITOR [Concomitant]
  5. PAXIL [Concomitant]
  6. INDERAL [Concomitant]
  7. HALCION [Concomitant]

REACTIONS (7)
  - BREAST CANCER FEMALE [None]
  - DRUG ADMINISTRATION ERROR [None]
  - INJECTION SITE DISCOLOURATION [None]
  - MEDICAL DEVICE COMPLICATION [None]
  - OVERDOSE [None]
  - PHARMACEUTICAL PRODUCT COMPLAINT [None]
  - UNDERDOSE [None]
